FAERS Safety Report 5939785-1 (Version None)
Quarter: 2008Q4

REPORT INFORMATION
  Report Type: 
  Country: None (occurrence: None)
  Receive Date: 20081030
  Receipt Date: 20081030
  Transmission Date: 20090506
  Serious: Yes (Other)
  Sender: FDA-Public Use
  Company Number: None

PATIENT
  Age: 12 Year
  Sex: Female
  Weight: 43.9989 kg

DRUGS (3)
  1. PAMIDRONATE IV [Suspect]
     Indication: OSTEOPOROSIS
     Dosage: 4 HOURS DRIP 1/DAY X 3 IV
     Route: 042
     Dates: start: 20081015
  2. PAMIDRONATE IV [Suspect]
     Indication: OSTEOPOROSIS
     Dosage: 4 HOURS DRIP 1/DAY X 3 IV
     Route: 042
     Dates: start: 20081016
  3. PAMIDRONATE IV [Suspect]
     Indication: OSTEOPOROSIS
     Dosage: 4 HOURS DRIP 1/DAY X 3 IV
     Route: 042
     Dates: start: 20081017

REACTIONS (2)
  - HEADACHE [None]
  - OPTIC NEURITIS [None]
